FAERS Safety Report 7291591-4 (Version None)
Quarter: 2011Q1

REPORT INFORMATION
  Report Type: 
  Country: None (occurrence: None)
  Receive Date: 20110214
  Receipt Date: 20110209
  Transmission Date: 20110831
  Serious: Yes (Death, Other)
  Sender: FDA-Public Use
  Company Number: PHHY2010IE66392

PATIENT
  Sex: Male

DRUGS (7)
  1. LANOXIN [Concomitant]
     Dosage: UNK
     Dates: start: 20061110
  2. LIPITOR [Concomitant]
     Dosage: UNK
     Dates: start: 20030826
  3. DIOVAN [Concomitant]
     Dosage: UNK
     Dates: start: 20061221
  4. NOVOMIX [Concomitant]
     Dosage: UNK
     Dates: start: 20060120
  5. ALDACTONE [Concomitant]
     Dosage: UNK
     Dates: start: 20090721
  6. RASILEZ [Suspect]
     Indication: HYPERTENSION
     Dosage: UNK
     Route: 048
     Dates: start: 20090505, end: 20100201
  7. WARFARIN [Concomitant]
     Dosage: UNK
     Dates: start: 20061011

REACTIONS (6)
  - GANGRENE [None]
  - RENAL FAILURE CHRONIC [None]
  - CONDITION AGGRAVATED [None]
  - SEPSIS [None]
  - DIABETIC NEPHROPATHY [None]
  - DIZZINESS [None]
